FAERS Safety Report 8013710-4 (Version None)
Quarter: 2011Q4

REPORT INFORMATION
  Report Type: 
  Country: None (occurrence: None)
  Receive Date: 20111229
  Receipt Date: 20111216
  Transmission Date: 20120403
  Serious: Yes (Other)
  Sender: FDA-Public Use
  Company Number: US-ELI_LILLY_AND_COMPANY-US201104000831

PATIENT
  Sex: Female

DRUGS (8)
  1. FORTEO [Suspect]
     Indication: OSTEOPOROSIS
     Dosage: 20 UG, QD
     Route: 065
     Dates: start: 20110324
  2. FORTEO [Suspect]
     Dosage: 20 UG, QD
     Route: 065
     Dates: end: 20110610
  3. FORTEO [Suspect]
     Dosage: 20 UG, QD
     Route: 065
  4. FORTEO [Suspect]
     Dosage: 20 UG, QD
  5. WELLBUTRIN [Concomitant]
     Indication: DEPRESSION
  6. CYMBALTA [Suspect]
     Dosage: 30 MG, QD
  7. CYMBALTA [Suspect]
     Indication: DEPRESSION
     Dosage: 30 MG, QD
     Dates: start: 20110913
  8. CYMBALTA [Suspect]
     Dosage: 60 MG, QD

REACTIONS (19)
  - FOOD AVERSION [None]
  - FATIGUE [None]
  - INTENTIONAL DRUG MISUSE [None]
  - DRUG INEFFECTIVE [None]
  - HIP SURGERY [None]
  - DEPRESSION [None]
  - INJECTION SITE SCAB [None]
  - SOMNOLENCE [None]
  - NAUSEA [None]
  - DIZZINESS [None]
  - ARTHRALGIA [None]
  - MUSCLE SPASMS [None]
  - VISUAL IMPAIRMENT [None]
  - VISION BLURRED [None]
  - CRYING [None]
  - PRESYNCOPE [None]
  - BONE PAIN [None]
  - LUNG DISORDER [None]
  - INJECTION SITE HAEMATOMA [None]
